FAERS Safety Report 16955495 (Version 1)
Quarter: 2019Q4

REPORT INFORMATION
  Report Type: Report from Study
  Country: NL (occurrence: NL)
  Receive Date: 20191024
  Receipt Date: 20191024
  Transmission Date: 20200122
  Serious: Yes (Hospitalization, Other)
  Sender: FDA-Public Use
  Company Number: NL-TEVA-2019-NL-1110506

PATIENT
  Age: 51 Year
  Sex: Male

DRUGS (5)
  1. COPAXONE [Suspect]
     Active Substance: GLATIRAMER ACETATE
     Indication: MULTIPLE SCLEROSIS
     Route: 058
     Dates: start: 20150415
  2. LITHIUM. [Suspect]
     Active Substance: LITHIUM
     Dosage: 400 MGR 2 DOSES DAILY
  3. TYRAX [Concomitant]
  4. DEPAKINE [Concomitant]
     Active Substance: VALPROATE SODIUM
     Dosage: 300 MGR 2 DOSES DAILY
  5. TEMAZEPAM. [Concomitant]
     Active Substance: TEMAZEPAM
     Dosage: 20 MILLIGRAM DAILY;

REACTIONS (3)
  - Dehydration [Recovered/Resolved]
  - Blood sodium decreased [Recovered/Resolved]
  - Nephrogenic diabetes insipidus [Recovered/Resolved]

NARRATIVE: CASE EVENT DATE: 201906
